FAERS Safety Report 4986515-6 (Version None)
Quarter: 2006Q2

REPORT INFORMATION
  Report Type: 
  Country: None (occurrence: None)
  Receive Date: 20060428
  Receipt Date: 20060419
  Transmission Date: 20061013
  Serious: Yes (Hospitalization)
  Sender: FDA-Public Use
  Company Number: US-ROCHE-445236

PATIENT
  Sex: Male

DRUGS (1)
  1. ACCUTANE [Suspect]
     Route: 065
     Dates: start: 19910615

REACTIONS (3)
  - ECZEMA HERPETICUM [None]
  - KAPOSI'S VARICELLIFORM ERUPTION [None]
  - STAPHYLOCOCCAL INFECTION [None]
